FAERS Safety Report 18591263 (Version 9)
Quarter: 2022Q4

REPORT INFORMATION
  Report Type: Report from Study
  Country: JP (occurrence: JP)
  Receive Date: 20201208
  Receipt Date: 20221002
  Transmission Date: 20230113
  Serious: Yes (Other)
  Sender: FDA-Public Use
  Company Number: JP-JNJFOC-A-CH2018-184259

PATIENT
  Age: 6 Year
  Sex: Female
  Weight: 13.3 kg

DRUGS (39)
  1. OPSUMIT [Suspect]
     Active Substance: MACITENTAN
     Indication: Pulmonary arterial hypertension
     Dosage: 1 MG, QD
     Route: 048
     Dates: start: 20160617, end: 20160715
  2. OPSUMIT [Suspect]
     Active Substance: MACITENTAN
     Dosage: 2 MG, QD
     Route: 048
     Dates: start: 20160715, end: 20160812
  3. OPSUMIT [Suspect]
     Active Substance: MACITENTAN
     Dosage: 2.5 MG, QD
     Route: 048
     Dates: start: 20160812, end: 20180105
  4. OPSUMIT [Suspect]
     Active Substance: MACITENTAN
     Dosage: 1 MG, QD
     Route: 048
     Dates: start: 20180106, end: 20180511
  5. OPSUMIT [Suspect]
     Active Substance: MACITENTAN
     Route: 048
     Dates: start: 20180512, end: 20181108
  6. OPSUMIT [Suspect]
     Active Substance: MACITENTAN
     Dosage: IN THE MORNING
     Route: 048
     Dates: start: 20181109, end: 20190301
  7. OPSUMIT [Suspect]
     Active Substance: MACITENTAN
     Dosage: IN THE MORNING
     Route: 048
     Dates: start: 20190302
  8. UPTRAVI [Suspect]
     Active Substance: SELEXIPAG
     Indication: Pulmonary arterial hypertension
     Dosage: 0.25 DF, BID
     Route: 048
     Dates: start: 20171215, end: 20180104
  9. UPTRAVI [Suspect]
     Active Substance: SELEXIPAG
     Dosage: 0.375 DF, BID
     Route: 048
     Dates: start: 20180105, end: 20180301
  10. UPTRAVI [Suspect]
     Active Substance: SELEXIPAG
     Dosage: 0.75 DF, BID
     Route: 048
     Dates: start: 20180302, end: 20180329
  11. UPTRAVI [Suspect]
     Active Substance: SELEXIPAG
     Dosage: 1 DF, BID
     Route: 048
     Dates: start: 20180330, end: 20180727
  12. UPTRAVI [Suspect]
     Active Substance: SELEXIPAG
     Route: 048
     Dates: start: 20180728, end: 20180824
  13. UPTRAVI [Suspect]
     Active Substance: SELEXIPAG
     Route: 048
     Dates: start: 20180825, end: 20180921
  14. UPTRAVI [Suspect]
     Active Substance: SELEXIPAG
     Route: 048
     Dates: start: 20180922, end: 20181214
  15. UPTRAVI [Suspect]
     Active Substance: SELEXIPAG
     Route: 048
     Dates: start: 20181215, end: 20190927
  16. UPTRAVI [Suspect]
     Active Substance: SELEXIPAG
     Route: 048
     Dates: start: 20190928, end: 20191220
  17. UPTRAVI [Suspect]
     Active Substance: SELEXIPAG
     Route: 048
     Dates: start: 20191221, end: 20200131
  18. UPTRAVI [Suspect]
     Active Substance: SELEXIPAG
     Route: 048
     Dates: start: 20200201
  19. ADCIRCA [Concomitant]
     Active Substance: TADALAFIL
     Indication: Pulmonary arterial hypertension
     Dosage: 1-2TAB IN 2 DIVIDED DOSES
     Route: 048
     Dates: start: 20160617
  20. ADCIRCA [Concomitant]
     Active Substance: TADALAFIL
     Dosage: 1-2TABX1TIME/DAY
     Route: 048
  21. ADCIRCA [Concomitant]
     Active Substance: TADALAFIL
     Route: 048
  22. ADCIRCA [Concomitant]
     Active Substance: TADALAFIL
     Route: 048
     Dates: end: 20200306
  23. ADCIRCA [Concomitant]
     Active Substance: TADALAFIL
     Route: 048
     Dates: start: 20200307, end: 20200402
  24. ADCIRCA [Concomitant]
     Active Substance: TADALAFIL
     Route: 048
     Dates: start: 20200403, end: 20200515
  25. ADCIRCA [Concomitant]
     Active Substance: TADALAFIL
     Route: 048
     Dates: start: 20200516, end: 20200626
  26. MAGNESIUM OXIDE [Concomitant]
     Active Substance: MAGNESIUM OXIDE
     Indication: Constipation
     Dosage: 0.5 G, QD
     Route: 048
     Dates: end: 20180510
  27. MAGNESIUM OXIDE [Concomitant]
     Active Substance: MAGNESIUM OXIDE
     Indication: Constipation prophylaxis
     Route: 048
     Dates: start: 20171006, end: 20171215
  28. MAGNESIUM OXIDE [Concomitant]
     Active Substance: MAGNESIUM OXIDE
     Route: 048
     Dates: start: 20161007, end: 20180511
  29. BERAPROST SODIUM [Concomitant]
     Active Substance: BERAPROST SODIUM
     Indication: Pulmonary arterial hypertension
     Route: 048
     Dates: start: 20171006, end: 20171215
  30. OXYGEN [Concomitant]
     Active Substance: OXYGEN
     Indication: Product used for unknown indication
     Dosage: DOSE UNKNOWN
     Route: 055
  31. ADEMPAS [Concomitant]
     Active Substance: RIOCIGUAT
     Indication: Pulmonary arterial hypertension
     Route: 065
     Dates: start: 20200306, end: 20200402
  32. ADEMPAS [Concomitant]
     Active Substance: RIOCIGUAT
     Route: 065
     Dates: start: 20200403, end: 20200515
  33. ADEMPAS [Concomitant]
     Active Substance: RIOCIGUAT
     Route: 065
     Dates: start: 20200516, end: 20200626
  34. ADEMPAS [Concomitant]
     Active Substance: RIOCIGUAT
     Route: 065
     Dates: start: 20200627, end: 20200731
  35. ADEMPAS [Concomitant]
     Active Substance: RIOCIGUAT
     Route: 065
     Dates: start: 20200801, end: 20200911
  36. ADEMPAS [Concomitant]
     Active Substance: RIOCIGUAT
     Route: 065
     Dates: start: 20200912, end: 20201204
  37. ADEMPAS [Concomitant]
     Active Substance: RIOCIGUAT
     Route: 065
     Dates: start: 20201205
  38. ULTIVA [Concomitant]
     Active Substance: REMIFENTANIL HYDROCHLORIDE
     Indication: Anaesthesia procedure
     Dates: start: 20191112, end: 20191112
  39. MEYLON [Concomitant]
     Active Substance: SODIUM BICARBONATE
     Dates: start: 20191112, end: 20191112

REACTIONS (5)
  - Pulmonary arterial hypertension [Recovered/Resolved]
  - Platelet count decreased [Recovered/Resolved]
  - Anaemia [Recovered/Resolved]
  - Off label use [Unknown]
  - Product use issue [Unknown]

NARRATIVE: CASE EVENT DATE: 20161007
